FAERS Safety Report 22307850 (Version 1)
Quarter: 2023Q2

REPORT INFORMATION
  Report Type: Spontaneous
  Country: RU (occurrence: None)
  Receive Date: 20230511
  Receipt Date: 20230511
  Transmission Date: 20230722
  Serious: Yes (Other)
  Sender: FDA-Public Use
  Company Number: 2023A106243

PATIENT
  Sex: Male

DRUGS (2)
  1. NEXIUM [Suspect]
     Active Substance: ESOMEPRAZOLE MAGNESIUM
     Dosage: 40 MG FOR 10 DAYS40.0MG UNKNOWN
     Route: 048
  2. NIMESULIDE [Concomitant]
     Active Substance: NIMESULIDE

REACTIONS (2)
  - Haemorrhage [Unknown]
  - Achlorhydria [Unknown]
